FAERS Safety Report 6632216-8 (Version None)
Quarter: 2010Q1

REPORT INFORMATION
  Report Type: 
  Country: None (occurrence: None)
  Receive Date: 20100312
  Receipt Date: 20100308
  Transmission Date: 20100710
  Serious: Yes (Other)
  Sender: FDA-Public Use
  Company Number: GXKR2010DE02265

PATIENT
  Sex: Male

DRUGS (4)
  1. SIMVAHEXAL (NGX) [Suspect]
     Dosage: 40 MG, UNK
     Route: 048
  2. FELODIPINE [Concomitant]
     Dosage: 5 MG, QD
     Route: 048
  3. PROVAS COMP [Concomitant]
     Dosage: 1 DF DAILY
     Route: 048
  4. CONCOR COR [Concomitant]
     Dosage: 1.25 MG, QD
     Route: 048

REACTIONS (2)
  - BLOOD AMYLASE INCREASED [None]
  - LIPASE INCREASED [None]
